FAERS Safety Report 13658432 (Version 7)
Quarter: 2019Q4

REPORT INFORMATION
  Report Type: Report from Study
  Country: JP (occurrence: JP)
  Receive Date: 20170616
  Receipt Date: 20191206
  Transmission Date: 20200122
  Serious: Yes (Hospitalization, Other)
  Sender: FDA-Public Use
  Company Number: JP-AMGEN-JPNCT2017091246

PATIENT
  Age: 61 Year
  Sex: Female
  Weight: 43 kg

DRUGS (68)
  1. ROMIPLOSTIM [Suspect]
     Active Substance: ROMIPLOSTIM
     Dosage: 8.17 MICROGRAM/KILOGRAM, QWK
     Route: 058
     Dates: start: 20160615, end: 20160622
  2. ROMIPLOSTIM [Suspect]
     Active Substance: ROMIPLOSTIM
     Dosage: 7 MICROGRAM/KILOGRAM, QWK
     Route: 058
     Dates: start: 20160629, end: 20160713
  3. ROMIPLOSTIM [Suspect]
     Active Substance: ROMIPLOSTIM
     Dosage: 9.34 MICROGRAM/KILOGRAM, QWK
     Route: 058
     Dates: start: 20161221, end: 20161228
  4. ROMIPLOSTIM [Suspect]
     Active Substance: ROMIPLOSTIM
     Dosage: 7.00 MICROGRAM/KILOGRAM
     Route: 058
     Dates: start: 20170111, end: 20170322
  5. ROMIPLOSTIM [Suspect]
     Active Substance: ROMIPLOSTIM
     Dosage: 3.5 MICROGRAM/KILOGRAM, QWK
     Route: 058
     Dates: start: 20170510, end: 20170531
  6. ROMIPLOSTIM [Suspect]
     Active Substance: ROMIPLOSTIM
     Dosage: 2.35 MICROGRAM/KILOGRAM
     Route: 058
     Dates: start: 20170719, end: 20170719
  7. PREDONINE [Suspect]
     Active Substance: PREDNISOLONE
     Dosage: 15 MILLIGRAM
     Route: 048
     Dates: start: 20151209, end: 20151215
  8. SOLANAX [Concomitant]
     Active Substance: ALPRAZOLAM
     Indication: INSOMNIA
     Dosage: UNK
     Route: 048
  9. ROMIPLOSTIM [Suspect]
     Active Substance: ROMIPLOSTIM
     Dosage: 7 MICROGRAM/KILOGRAM, QWK
     Route: 058
     Dates: start: 20160427, end: 20160502
  10. ROMIPLOSTIM [Suspect]
     Active Substance: ROMIPLOSTIM
     Dosage: 9.34 MICROGRAM/KILOGRAM, QWK
     Route: 058
     Dates: start: 20160511, end: 20160511
  11. ROMIPLOSTIM [Suspect]
     Active Substance: ROMIPLOSTIM
     Dosage: 8.17 MICROGRAM/KILOGRAM
     Route: 058
     Dates: start: 20170104, end: 20170104
  12. ROMIPLOSTIM [Suspect]
     Active Substance: ROMIPLOSTIM
     Dosage: 3.5 MICROGRAM/KILOGRAM
     Route: 058
     Dates: start: 20170712, end: 20170712
  13. ROMIPLOSTIM [Suspect]
     Active Substance: ROMIPLOSTIM
     Dosage: 3.5 MICROGRAM/KILOGRAM, QWK
     Route: 058
     Dates: start: 20170809
  14. PREDONINE [Suspect]
     Active Substance: PREDNISOLONE
     Dosage: 20 MILLIGRAM
     Route: 048
     Dates: start: 20160413, end: 20160419
  15. PREDONINE [Suspect]
     Active Substance: PREDNISOLONE
     Dosage: 2.5 MILLIGRAM
     Route: 048
     Dates: start: 20160810, end: 20160816
  16. ROMIPLOSTIM [Suspect]
     Active Substance: ROMIPLOSTIM
     Dosage: 10.51 MICROGRAM/KILOGRAM, QWK
     Route: 058
     Dates: start: 20160601, end: 20160601
  17. ROMIPLOSTIM [Suspect]
     Active Substance: ROMIPLOSTIM
     Dosage: 10.51 MICROGRAM/KILOGRAM
     Route: 058
     Dates: start: 20161214, end: 20161214
  18. PREDONINE [Suspect]
     Active Substance: PREDNISOLONE
     Dosage: 15 MILLIGRAM
     Route: 048
     Dates: start: 20160615, end: 20160621
  19. LANSOPRAZOLE. [Concomitant]
     Active Substance: LANSOPRAZOLE
     Indication: CHRONIC GASTRITIS
     Dosage: UNK
     Route: 048
  20. ROMIPLOSTIM [Suspect]
     Active Substance: ROMIPLOSTIM
     Dosage: 10.51 MICROGRAM/KILOGRAM
     Route: 058
     Dates: start: 20160323, end: 20160323
  21. ROMIPLOSTIM [Suspect]
     Active Substance: ROMIPLOSTIM
     Dosage: 11.68 MICROGRAM/KILOGRAM, QWK
     Route: 058
     Dates: start: 20160720, end: 20161207
  22. PREDONINE [Suspect]
     Active Substance: PREDNISOLONE
     Dosage: 15 MILLIGRAM
     Route: 048
     Dates: start: 20160126, end: 20160209
  23. POLYGLOBIN [Concomitant]
     Active Substance: HUMAN IMMUNOGLOBULIN G
     Indication: IMMUNE THROMBOCYTOPENIC PURPURA
     Dosage: 17 GRAM
     Route: 042
     Dates: start: 20160108, end: 20160111
  24. SHAKUYAKUKANZOTO [Concomitant]
     Active Substance: HERBALS
     Indication: PROPHYLAXIS
     Dosage: UNK
     Route: 048
  25. CEFAZOLIN NA [Concomitant]
     Active Substance: CEFAZOLIN SODIUM
     Indication: PROPHYLAXIS
     Dosage: UNK
     Route: 042
  26. FERROMIA [Concomitant]
     Active Substance: SODIUM FERROUS CITRATE
     Indication: IRON DEFICIENCY ANAEMIA
     Dosage: UNK
     Route: 048
  27. CALONAL [Concomitant]
     Active Substance: ACETAMINOPHEN
     Indication: HEADACHE
     Dosage: UNK
     Route: 048
  28. ROMIPLOSTIM [Suspect]
     Active Substance: ROMIPLOSTIM
     Dosage: 7 MICROGRAM/KILOGRAM, QWK
     Route: 058
     Dates: start: 20151125, end: 20151228
  29. ROMIPLOSTIM [Suspect]
     Active Substance: ROMIPLOSTIM
     Dosage: 11.68 MICROGRAM/KILOGRAM, QWK
     Route: 058
     Dates: start: 20160105, end: 20160224
  30. ROMIPLOSTIM [Suspect]
     Active Substance: ROMIPLOSTIM
     Dosage: 9.34 MICROGRAM/KILOGRAM, QWK
     Route: 058
     Dates: start: 20160330, end: 20160413
  31. ROMIPLOSTIM [Suspect]
     Active Substance: ROMIPLOSTIM
     Dosage: 11.64 MICROGRAM/KILOGRAM, QWK
     Route: 058
     Dates: start: 20160518, end: 20160525
  32. ROMIPLOSTIM [Suspect]
     Active Substance: ROMIPLOSTIM
     Dosage: 5.84 MICROGRAM/KILOGRAM, Q2WK
     Route: 058
     Dates: start: 20170118, end: 20170315
  33. ROMIPLOSTIM [Suspect]
     Active Substance: ROMIPLOSTIM
     Dosage: 7 MICROGRAM/KILOGRAM
     Route: 058
     Dates: start: 20170329, end: 20170329
  34. ROMIPLOSTIM [Suspect]
     Active Substance: ROMIPLOSTIM
     Dosage: 5.84 MICROGRAM/KILOGRAM
     Route: 058
     Dates: start: 20170405
  35. ROMIPLOSTIM [Suspect]
     Active Substance: ROMIPLOSTIM
     Dosage: 3.5 MICROGRAM/KILOGRAM
     Route: 058
     Dates: start: 20170726, end: 20170726
  36. ROMIPLOSTIM [Suspect]
     Active Substance: ROMIPLOSTIM
     Dosage: 2.35 MICROGRAM/KILOGRAM
     Route: 058
     Dates: start: 20170802, end: 20170802
  37. PREDONINE [Suspect]
     Active Substance: PREDNISOLONE
     Indication: IMMUNE THROMBOCYTOPENIC PURPURA
     Dosage: 25 MILLIGRAM
     Route: 048
     Dates: start: 20151102, end: 20151201
  38. PREDONINE [Suspect]
     Active Substance: PREDNISOLONE
     Dosage: 20 MILLIGRAM
     Route: 048
     Dates: start: 20160119, end: 20160125
  39. PNEUMOVAX 23 [Concomitant]
     Active Substance: PNEUMOCOCCAL VACCINE, POLYVALENT 23
     Indication: PROPHYLAXIS
     Dosage: UNK
     Route: 065
  40. ROMIPLOSTIM [Suspect]
     Active Substance: ROMIPLOSTIM
     Dosage: 8.17 MICROGRAM/KILOGRAM, QWK
     Route: 058
     Dates: start: 20160420, end: 20160420
  41. ROMIPLOSTIM [Suspect]
     Active Substance: ROMIPLOSTIM
     Dosage: 2.35 MICROGRAM/KILOGRAM, QWK
     Route: 058
     Dates: start: 20170607, end: 20170621
  42. ROMIPLOSTIM [Suspect]
     Active Substance: ROMIPLOSTIM
     Dosage: 2.35 MICROGRAM/KILOGRAM
     Route: 058
     Dates: start: 20170705, end: 20170705
  43. PREDONINE [Suspect]
     Active Substance: PREDNISOLONE
     Dosage: 20 MILLIGRAM
     Route: 048
     Dates: start: 20160608, end: 20160614
  44. WARFARIN [Concomitant]
     Active Substance: WARFARIN
     Indication: DEEP VEIN THROMBOSIS
     Dosage: UNK
     Route: 048
  45. LOXONIN [Concomitant]
     Active Substance: LOXOPROFEN SODIUM
     Indication: PRODUCT USED FOR UNKNOWN INDICATION
     Dosage: UNK
     Route: 065
  46. HEPARIN SODIUM. [Concomitant]
     Active Substance: HEPARIN SODIUM
     Indication: PRODUCT USED FOR UNKNOWN INDICATION
     Dosage: UNK
     Route: 065
  47. ROMIPLOSTIM [Suspect]
     Active Substance: ROMIPLOSTIM
     Dosage: 11.68 MICROGRAM/KILOGRAM, QWK
     Route: 058
     Dates: start: 20160309, end: 20160316
  48. ROMIPLOSTIM [Suspect]
     Active Substance: ROMIPLOSTIM
     Dosage: 4.67 MICROGRAM/KILOGRAM
     Route: 058
     Dates: start: 20170412, end: 20170502
  49. PREDONINE [Suspect]
     Active Substance: PREDNISOLONE
     Dosage: 10 MILLIGRAM
     Route: 048
     Dates: start: 20151216, end: 20160104
  50. PREDONINE [Suspect]
     Active Substance: PREDNISOLONE
     Dosage: 15 MILLIGRAM
     Route: 048
     Dates: start: 20160420, end: 20160517
  51. PREDONINE [Suspect]
     Active Substance: PREDNISOLONE
     Dosage: 25 MILLIGRAM
     Route: 048
     Dates: start: 20160518, end: 20160607
  52. PREDONINE [Suspect]
     Active Substance: PREDNISOLONE
     Dosage: 10 MILLIGRAM
     Route: 048
     Dates: start: 20160622, end: 20160726
  53. PREDONINE [Suspect]
     Active Substance: PREDNISOLONE
     Dosage: 5 MILLIGRAM
     Route: 048
     Dates: start: 20160727, end: 20160809
  54. PREDONINE [Suspect]
     Active Substance: PREDNISOLONE
     Dosage: 10 MILLIGRAM
     Route: 048
     Dates: start: 20160817, end: 20161011
  55. BAKTAR [Concomitant]
     Active Substance: SULFAMETHOXAZOLE\TRIMETHOPRIM
     Indication: PROPHYLAXIS
     Dosage: UNK
     Route: 048
  56. MAGLAX [Concomitant]
     Active Substance: MAGNESIUM OXIDE
     Indication: CONSTIPATION
     Dosage: UNK
     Route: 048
  57. LENDORMIN [Concomitant]
     Active Substance: BROTIZOLAM
     Indication: INSOMNIA
     Dosage: UNK
     Route: 048
  58. ROMIPLOSTIM [Suspect]
     Active Substance: ROMIPLOSTIM
     Indication: IMMUNE THROMBOCYTOPENIC PURPURA
     Dosage: 9.34 MICROGRAM/KILOGRAM, QWK
     Route: 058
     Dates: start: 20151106, end: 20151111
  59. ROMIPLOSTIM [Suspect]
     Active Substance: ROMIPLOSTIM
     Dosage: 5.84 MICROGRAM/KILOGRAM, QWK
     Route: 058
     Dates: start: 20151118, end: 20151118
  60. ROMIPLOSTIM [Suspect]
     Active Substance: ROMIPLOSTIM
     Dosage: 9.34 MICROGRAM/KILOGRAM, QWK
     Route: 058
     Dates: start: 20160608, end: 20160608
  61. ROMIPLOSTIM [Suspect]
     Active Substance: ROMIPLOSTIM
     Dosage: 3.5 MICROGRAM/KILOGRAM
     Route: 058
     Dates: start: 20170628, end: 20170628
  62. PREDONINE [Suspect]
     Active Substance: PREDNISOLONE
     Dosage: 20 MILLIGRAM
     Route: 048
     Dates: start: 20151202, end: 20151208
  63. PREDONINE [Suspect]
     Active Substance: PREDNISOLONE
     Dosage: 25 MILLIGRAM
     Route: 048
     Dates: start: 20160105, end: 20160118
  64. PREDONINE [Suspect]
     Active Substance: PREDNISOLONE
     Dosage: 25 MILLIGRAM
     Route: 048
     Dates: start: 20160210, end: 20160412
  65. PREDONINE [Suspect]
     Active Substance: PREDNISOLONE
     Dosage: 7.5 MILLIGRAM
     Route: 048
     Dates: start: 20161012, end: 20161101
  66. PREDONINE [Suspect]
     Active Substance: PREDNISOLONE
     Dosage: 10 MILLIGRAM
     Route: 048
     Dates: start: 20161102, end: 20161108
  67. BONALON [Concomitant]
     Active Substance: ALENDRONATE SODIUM
     Indication: OSTEOPOROSIS
     Dosage: UNK
     Route: 065
  68. BROTIZOLAM [Concomitant]
     Active Substance: BROTIZOLAM
     Indication: INSOMNIA
     Dosage: UNK
     Route: 048

REACTIONS (6)
  - Vomiting [Recovered/Resolved]
  - White blood cell count increased [Not Recovered/Not Resolved]
  - Deep vein thrombosis [Recovered/Resolved]
  - Arthralgia [Recovered/Resolved]
  - Nodal marginal zone B-cell lymphoma [Not Recovered/Not Resolved]
  - Neutrophil percentage increased [Not Recovered/Not Resolved]

NARRATIVE: CASE EVENT DATE: 20151113
